FAERS Safety Report 4385078-6 (Version None)
Quarter: 2004Q2

REPORT INFORMATION
  Report Type: 
  Country: None (occurrence: None)
  Receive Date: 20040625
  Receipt Date: 20040506
  Transmission Date: 20050107
  Serious: Yes (Hospitalization, Other)
  Sender: FDA-Public Use
  Company Number: PHBS2004JP06171

PATIENT
  Age: 7 Year
  Sex: Female
  Weight: 30 kg

DRUGS (7)
  1. TEGRETOL [Suspect]
     Indication: CONVULSION
     Dosage: 600 MG/DAY
     Route: 048
     Dates: start: 20040422, end: 20040422
  2. TEGRETOL [Suspect]
     Dosage: 400 MG/DAY
     Route: 048
     Dates: start: 20040423, end: 20040426
  3. TEGRETOL [Suspect]
     Dosage: 100 MG/DAY
     Route: 048
     Dates: start: 20040427, end: 20040429
  4. DEPAKENE [Concomitant]
     Indication: CONVULSION
     Dosage: 300 MG
     Route: 048
     Dates: start: 20040501, end: 20040503
  5. ACYCLOVIR [Concomitant]
     Indication: ENCEPHALITIS
     Dosage: 750 MG
     Dates: start: 20040501, end: 20040516
  6. WAKOBITAL [Concomitant]
     Indication: CONVULSION
     Dosage: 100 MG
     Route: 054
     Dates: start: 20040506
  7. EXCEGRAN [Concomitant]
     Indication: CONVULSION
     Dosage: 90 MG
     Route: 048
     Dates: start: 20040511

REACTIONS (7)
  - ATAXIA [None]
  - DEPRESSED LEVEL OF CONSCIOUSNESS [None]
  - DRUG LEVEL INCREASED [None]
  - DYSKINESIA [None]
  - ENCEPHALITIS [None]
  - SOMNOLENCE [None]
  - STATUS EPILEPTICUS [None]
